FAERS Safety Report 7290205-7 (Version None)
Quarter: 2011Q1

REPORT INFORMATION
  Report Type: 
  Country: None (occurrence: None)
  Receive Date: 20110214
  Receipt Date: 20110131
  Transmission Date: 20110831
  Serious: Yes (Hospitalization)
  Sender: FDA-Public Use
  Company Number: FR-CELGENEUS-056-C5013-11020039

PATIENT
  Sex: Male
  Weight: 68 kg

DRUGS (15)
  1. PREDNISONE TAB [Suspect]
     Indication: MULTIPLE MYELOMA
     Route: 065
     Dates: start: 20101118
  2. BISOPROLOL [Concomitant]
     Route: 048
     Dates: start: 20100901
  3. FUROSEMIDE [Concomitant]
     Route: 048
     Dates: start: 20100901, end: 20101221
  4. THALIDOMIDE [Suspect]
     Indication: MULTIPLE MYELOMA
     Route: 048
     Dates: start: 20101118
  5. PREDNISONE TAB [Suspect]
     Route: 065
     Dates: start: 20101230, end: 20110102
  6. ASPIRIN [Concomitant]
     Indication: THROMBOSIS PROPHYLAXIS
     Route: 048
     Dates: start: 20100515
  7. FUROSEMIDE [Concomitant]
     Route: 048
     Dates: start: 20101222
  8. MELPHALAN [Suspect]
     Route: 065
     Dates: start: 20101230, end: 20110102
  9. MELPHALAN [Suspect]
     Indication: MULTIPLE MYELOMA
     Route: 065
     Dates: start: 20101118
  10. CRESTOR [Concomitant]
     Route: 048
     Dates: start: 20100901
  11. CLASTOBAN [Concomitant]
     Indication: PROPHYLAXIS
     Route: 048
     Dates: start: 20101117
  12. THALIDOMIDE [Suspect]
     Route: 048
     Dates: start: 20101230
  13. DIFFU K [Concomitant]
     Indication: PROPHYLAXIS
     Route: 048
     Dates: start: 20100901
  14. CLOPIDOGREL [Concomitant]
     Indication: THROMBOSIS PROPHYLAXIS
     Route: 048
     Dates: start: 20100901
  15. COVERSYL [Concomitant]
     Route: 048
     Dates: start: 20101105

REACTIONS (1)
  - CORONARY ARTERY INSUFFICIENCY [None]
